FAERS Safety Report 5646772-X (Version None)
Quarter: 2008Q1

REPORT INFORMATION
  Report Type: 
  Country: None (occurrence: None)
  Receive Date: 20080229
  Receipt Date: 20080229
  Transmission Date: 20080703
  Serious: No
  Sender: FDA-Public Use
  Company Number: None

PATIENT
  Sex: Female

DRUGS (2)
  1. OXYCONTIN [Suspect]
     Indication: ABDOMINAL PAIN
     Dosage: 2 PO QID
     Route: 048
     Dates: start: 20070913, end: 20071129
  2. OXYCONTIN [Suspect]
     Indication: CANCER PAIN
     Dosage: 2 PO QID
     Route: 048
     Dates: start: 20070913, end: 20071129

REACTIONS (2)
  - DRUG INEFFECTIVE [None]
  - THERAPEUTIC RESPONSE UNEXPECTED WITH DRUG SUBSTITUTION [None]
